FAERS Safety Report 5123041-8 (Version None)
Quarter: 2006Q4

REPORT INFORMATION
  Report Type: 
  Country: None (occurrence: None)
  Receive Date: 20061009
  Receipt Date: 20060926
  Transmission Date: 20070319
  Serious: Yes (Other)
  Sender: FDA-Public Use
  Company Number: PHEH2006US12227

PATIENT
  Age: 48 Year
  Sex: Female

DRUGS (1)
  1. TRILEPTAL [Suspect]
     Indication: AFFECTIVE DISORDER
     Dates: start: 20050101

REACTIONS (2)
  - IMPAIRED HEALING [None]
  - LOWER LIMB FRACTURE [None]
